FAERS Safety Report 9481396 (Version 1)
Quarter: 2013Q3

REPORT INFORMATION
  Report Type: Spontaneous
  Country: US (occurrence: US)
  Receive Date: 20130828
  Receipt Date: 20130828
  Transmission Date: 20140515
  Serious: Yes (Hospitalization, Other)
  Sender: FDA-Public Use
  Company Number: US-AMGEN-KDL165979

PATIENT
  Age: 59 Year
  Sex: Female

DRUGS (3)
  1. ENBREL [Suspect]
     Indication: RHEUMATOID ARTHRITIS
     Dosage: 50 MG, QWK
     Route: 058
     Dates: start: 20050303
  2. ENBREL [Suspect]
     Indication: SERONEGATIVE ARTHRITIS
  3. METHOTREXATE [Concomitant]
     Dosage: 5 MG, QWK
     Route: 048
     Dates: start: 2005

REACTIONS (4)
  - Crohn^s disease [Unknown]
  - Hernia [Unknown]
  - Gastrointestinal stoma complication [Unknown]
  - Abscess intestinal [Unknown]
